FAERS Safety Report 10203996 (Version 2)
Quarter: 2014Q2

REPORT INFORMATION
  Report Type: Spontaneous
  Country: US (occurrence: None)
  Receive Date: 20140527
  Receipt Date: 20140618
  Transmission Date: 20141212
  Serious: Yes (Death, Other)
  Sender: FDA-Public Use
  Company Number: 153122

PATIENT
  Age: 1 Year
  Sex: Female
  Weight: 9 kg

DRUGS (1)
  1. AMIKACIN SULFATE [Suspect]
     Indication: DISSEMINATED TUBERCULOSIS
     Route: 042
     Dates: start: 20130524

REACTIONS (8)
  - Respiratory arrest [None]
  - Cardiac arrest [None]
  - Drug interaction [None]
  - Dyskinesia [None]
  - Oedema peripheral [None]
  - Vomiting [None]
  - Cardiac failure [None]
  - Abdominal distension [None]
